FAERS Safety Report 12318960 (Version 1)
Quarter: 2016Q2

REPORT INFORMATION
  Report Type: Report from Study
  Country: RO (occurrence: RO)
  Receive Date: 20160429
  Receipt Date: 20160429
  Transmission Date: 20160815
  Serious: Yes (Death, Hospitalization)
  Sender: FDA-Public Use
  Company Number: RO-KADMON PHARMACEUTICALS, LLC-KAD201604-001604

PATIENT
  Age: 77 Year
  Sex: Male
  Weight: 61 kg

DRUGS (7)
  1. VIEKIRAX [Suspect]
     Active Substance: OMBITASVIR\PARITAPREVIR\RITONAVIR
     Indication: HEPATIC CIRRHOSIS
     Dosage: FILM-COATED TABLET
     Route: 048
     Dates: start: 20160311, end: 20160326
  2. RIBAVIRIN 200 MG TABLETS [Suspect]
     Active Substance: RIBAVIRIN
     Indication: HEPATIC CIRRHOSIS
     Route: 048
     Dates: start: 20150311, end: 20160326
  3. ASPENTER 75 MG TABLET [Concomitant]
     Indication: CORONARY ARTERY BYPASS
     Route: 048
  4. METOPROLOL 100 MG TABLET [Concomitant]
     Indication: CORONARY ARTERY BYPASS
     Route: 048
  5. RILMENIDINE 1.5 MG TABLET [Concomitant]
     Indication: HYPERTENSION
     Route: 048
  6. RAMIPRIL 5 MG TABLET [Concomitant]
     Indication: HYPERTENSION
     Route: 048
  7. EXVIERA 250 MG [Suspect]
     Active Substance: DASABUVIR
     Indication: HEPATIC CIRRHOSIS
     Dosage: FILM-COATED TABLET
     Route: 048
     Dates: start: 20160311, end: 20160326

REACTIONS (6)
  - Pneumonia [Fatal]
  - Anaemia [Unknown]
  - Hyperbilirubinaemia [Unknown]
  - Multiple organ dysfunction syndrome [Fatal]
  - Acute coronary syndrome [Unknown]
  - Sepsis [Fatal]

NARRATIVE: CASE EVENT DATE: 20160323
